FAERS Safety Report 8340209-8 (Version None)
Quarter: 2012Q2

REPORT INFORMATION
  Report Type: 
  Country: None (occurrence: None)
  Receive Date: 20120507
  Receipt Date: 20120430
  Transmission Date: 20120825
  Serious: Yes (Hospitalization, Other)
  Sender: FDA-Public Use
  Company Number: EE-PFIZER INC-2012099344

PATIENT
  Age: 64 Year
  Sex: Male
  Weight: 60 kg

DRUGS (23)
  1. ACETYLCYSTEINE [Concomitant]
     Dosage: 200 MG, 3X/DAY
     Dates: start: 20120407, end: 20120417
  2. RETAFYLLIN [Concomitant]
     Dosage: 200 MG, 2X/DAY
     Dates: start: 20120407, end: 20120417
  3. OMEPRAZOLE [Concomitant]
     Dosage: 20 MG, 2X/DAY
     Dates: start: 20120407
  4. DIGOXIN [Concomitant]
     Dosage: 62.5 MG, 1X/DAY
     Dates: start: 20120407
  5. VANCOMYCIN [Concomitant]
     Dosage: 1 G, 1X/DAY
     Dates: start: 20120416, end: 20120416
  6. PULMICORT [Concomitant]
     Dosage: UNK
     Route: 055
     Dates: start: 20120407, end: 20120417
  7. VFEND [Suspect]
     Indication: ASPERGILLOSIS
     Dosage: 200 MG, 2X/DAY
     Route: 042
     Dates: start: 20120411, end: 20120415
  8. PREDNISOLONE [Concomitant]
     Dosage: 25 MG, UNK
     Dates: start: 20120408, end: 20120408
  9. IMDUR [Concomitant]
     Dosage: 30 MG, 1X/DAY
     Dates: start: 20120407, end: 20120409
  10. CALCIGRAN [Concomitant]
     Dosage: 2 DF, 1X/DAY
     Dates: start: 20120407
  11. SODIUM CHLORIDE [Concomitant]
     Dosage: 0.9 %/500 ML, UNK
     Route: 042
     Dates: start: 20120413
  12. AMBISOME [Concomitant]
     Dosage: UNK
     Route: 042
     Dates: start: 20120416
  13. AMINOPHYLLINE [Concomitant]
     Dosage: 125 MG, UNK
     Dates: start: 20120408, end: 20120410
  14. POTASSIUM CHLORIDE [Concomitant]
     Dosage: UNK
     Dates: start: 20120407, end: 20120408
  15. ITRACONAZOLE [Concomitant]
     Dosage: 100 MG, 1X/DAY
     Dates: start: 20120409, end: 20120411
  16. DEXON [Concomitant]
     Dosage: 8 MG, UNK
     Route: 042
     Dates: start: 20120415, end: 20120415
  17. VANCOMYCIN [Concomitant]
     Dosage: 1 G, 2X/DAY
     Dates: start: 20120415, end: 20120415
  18. CLARITHROMYCIN [Concomitant]
     Dosage: 500 MG, 2X/DAY
     Dates: start: 20120407, end: 20120412
  19. IMIPENEM AND CILASTATIN SODIUM [Concomitant]
     Dosage: 1 G, 3X/DAY
     Route: 042
     Dates: start: 20120407, end: 20120415
  20. SPIRONOLACTONE [Concomitant]
     Dosage: 25 MG, 2X/DAY
     Dates: start: 20120407
  21. IMDUR [Concomitant]
     Dosage: 30 MG, 2X/DAY
     Dates: start: 20120410
  22. MICONAZOLE [Concomitant]
     Dosage: UNK
     Dates: start: 20120407
  23. POTASSIUM CHLORIDE W/SODIUM CHLORIDE [Concomitant]
     Dosage: UNK
     Route: 042
     Dates: start: 20120407, end: 20120412

REACTIONS (2)
  - DISORIENTATION [None]
  - LIVER INJURY [None]
